FAERS Safety Report 17674287 (Version 1)
Quarter: 2020Q2

REPORT INFORMATION
  Report Type: Report from Study
  Country: AU (occurrence: AU)
  Receive Date: 20200416
  Receipt Date: 20200416
  Transmission Date: 20200714
  Serious: Yes (Other)
  Sender: FDA-Public Use
  Company Number: AU-GLAXOSMITHKLINE-AU2020APC065006

PATIENT
  Sex: Female

DRUGS (2)
  1. MEPOLIZUMAB [Suspect]
     Active Substance: MEPOLIZUMAB
     Indication: ASTHMA
     Dosage: 100 MG, Z(MONTHLY)
     Route: 058
     Dates: start: 20191202
  2. MEPOLIZUMAB [Suspect]
     Active Substance: MEPOLIZUMAB
     Dosage: 100 MG, Z(MONTHLY)
     Route: 058
     Dates: start: 20200316

REACTIONS (5)
  - Fall [Recovering/Resolving]
  - Contusion [Recovering/Resolving]
  - Swelling [Recovering/Resolving]
  - Loss of consciousness [Recovering/Resolving]
  - Feeling abnormal [Recovering/Resolving]
